FAERS Safety Report 5821254-0 (Version None)
Quarter: 2008Q3

REPORT INFORMATION
  Report Type: 
  Country: None (occurrence: None)
  Receive Date: 20080721
  Receipt Date: 20080707
  Transmission Date: 20090109
  Serious: Yes (Hospitalization)
  Sender: FDA-Public Use
  Company Number: 2008BI012190

PATIENT
  Age: 50 Year
  Sex: Female
  Weight: 151.955 kg

DRUGS (11)
  1. AVONEX [Suspect]
     Indication: MULTIPLE SCLEROSIS
     Dosage: 30 UG;QW;IM
     Route: 030
     Dates: start: 20000301, end: 20030101
  2. AVONEX [Suspect]
     Indication: MULTIPLE SCLEROSIS
     Dosage: 30 UG;QW;IM
     Route: 030
     Dates: start: 20030101, end: 20080502
  3. AVONEX [Suspect]
     Indication: MULTIPLE SCLEROSIS
     Dosage: 30 UG;QW;IM
     Route: 030
     Dates: start: 20080501
  4. EYE DROPS [Concomitant]
  5. LOPERAMIDE HCL [Concomitant]
  6. DIURETIC [Concomitant]
  7. ANGIOTENSION RECEPTOR BLOPCKER [Concomitant]
  8. LOPERAMIDE HCL [Concomitant]
  9. EYE DROPS [Concomitant]
  10. COZAAR [Concomitant]
  11. AMANTADINE HCL [Concomitant]

REACTIONS (25)
  - ABDOMINAL PAIN UPPER [None]
  - ACANTHAMOEBA INFECTION [None]
  - ARTHROPATHY [None]
  - ASTHENIA [None]
  - BLOOD SODIUM DECREASED [None]
  - CELLULITIS [None]
  - CORNEAL ABRASION [None]
  - DECUBITUS ULCER [None]
  - DEPRESSION [None]
  - DIARRHOEA [None]
  - ERYTHEMA [None]
  - FATIGUE [None]
  - HAEMOGLOBIN DECREASED [None]
  - HEPATIC ENZYME INCREASED [None]
  - HYPERTENSION [None]
  - HYPOTENSION [None]
  - MUSCULAR WEAKNESS [None]
  - OEDEMA PERIPHERAL [None]
  - RENAL FAILURE ACUTE [None]
  - RETINAL TEAR [None]
  - SEPSIS [None]
  - SKIN WARM [None]
  - THROMBOCYTOPENIA [None]
  - VISION BLURRED [None]
  - WHITE BLOOD CELL COUNT INCREASED [None]
